FAERS Safety Report 8057455-3 (Version None)
Quarter: 2012Q1

REPORT INFORMATION
  Report Type: 
  Country: None (occurrence: None)
  Receive Date: 20120119
  Receipt Date: 20120110
  Transmission Date: 20120608
  Serious: Yes (Hospitalization, Other)
  Sender: FDA-Public Use
  Company Number: US-ASTRAZENECA-2010SE55196

PATIENT
  Age: 57 Year
  Sex: Male

DRUGS (2)
  1. NEXIUM [Suspect]
     Route: 048
  2. GENERIC FOR NORVASC [Concomitant]

REACTIONS (5)
  - LIMB INJURY [None]
  - INJURY CORNEAL [None]
  - HYPERTENSION [None]
  - CATARACT [None]
  - CATARACT OPERATION COMPLICATION [None]
